FAERS Safety Report 5709129-9 (Version None)
Quarter: 2008Q2

REPORT INFORMATION
  Report Type: 
  Country: None (occurrence: None)
  Receive Date: 20080416
  Receipt Date: 20080416
  Transmission Date: 20081010
  Serious: Yes (Other)
  Sender: FDA-Public Use
  Company Number: None

PATIENT
  Age: 5 Year
  Sex: Male
  Weight: 29.4838 kg

DRUGS (4)
  1. SINGULAIR [Suspect]
     Indication: MULTIPLE ALLERGIES
     Dosage: 4 MG 1 TABLET EVERY DAY PO
     Route: 048
     Dates: start: 20080411, end: 20080414
  2. SINGULAIR [Suspect]
     Indication: SEASONAL ALLERGY
     Dosage: 4 MG 1 TABLET EVERY DAY PO
     Route: 048
     Dates: start: 20080411, end: 20080414
  3. SINGULAIR [Suspect]
     Indication: MULTIPLE ALLERGIES
     Dosage: 4 MG 1 TABLET EVERY DAY PO
     Route: 048
     Dates: start: 20070501
  4. SINGULAIR [Suspect]
     Indication: SEASONAL ALLERGY
     Dosage: 4 MG 1 TABLET EVERY DAY PO
     Route: 048
     Dates: start: 20070501

REACTIONS (18)
  - ABDOMINAL PAIN UPPER [None]
  - AGGRESSION [None]
  - CHILLS [None]
  - CONSTIPATION [None]
  - COUGH [None]
  - CRYING [None]
  - DEPRESSED MOOD [None]
  - EAR PAIN [None]
  - ENURESIS [None]
  - FEAR [None]
  - HALLUCINATION [None]
  - HUNGER [None]
  - INSOMNIA [None]
  - MALAISE [None]
  - NIGHTMARE [None]
  - PAIN IN EXTREMITY [None]
  - PENILE PAIN [None]
  - PYREXIA [None]
